FAERS Safety Report 10305122 (Version 5)
Quarter: 2015Q2

REPORT INFORMATION
  Report Type: Report from Study
  Country: CN (occurrence: CN)
  Receive Date: 20140715
  Receipt Date: 20150624
  Transmission Date: 20150821
  Serious: Yes (Death, Hospitalization)
  Sender: FDA-Public Use
  Company Number: CN-ASTELLAS-2014US008037

PATIENT
  Sex: Male

DRUGS (1)
  1. ERLOTINIB [Suspect]
     Active Substance: ERLOTINIB
     Indication: NON-SMALL CELL LUNG CANCER
     Route: 048
     Dates: start: 20091025

REACTIONS (5)
  - Nasopharyngitis [Unknown]
  - Cardiopulmonary failure [Fatal]
  - Diarrhoea [Unknown]
  - Anaemia [Unknown]
  - Pyrexia [Unknown]
